FAERS Safety Report 4715232-2 (Version None)
Quarter: 2005Q2

REPORT INFORMATION
  Report Type: 
  Country: None (occurrence: None)
  Receive Date: 20050630
  Receipt Date: 20050516
  Transmission Date: 20051028
  Serious: No
  Sender: FDA-Public Use
  Company Number: 211862

PATIENT
  Age: 62 Year
  Sex: Male
  Weight: 69.4 kg

DRUGS (2)
  1. AVASTIN [Suspect]
     Indication: COLON CANCER
     Dosage: 370 MG, Q2W, INTRAVENOUS
     Route: 042
     Dates: start: 20040803, end: 20050118
  2. CAMPTOSAR [Concomitant]

REACTIONS (1)
  - JAUNDICE [None]
